FAERS Safety Report 14992352 (Version 1)
Quarter: 2018Q2

REPORT INFORMATION
  Report Type: Spontaneous
  Country: US (occurrence: US)
  Receive Date: 20180517
  Receipt Date: 20180517
  Transmission Date: 20180711
  Serious: No
  Sender: FDA-Public Use
  Company Number: None

PATIENT
  Age: 66 Year
  Sex: Female

DRUGS (1)
  1. HUMIRA [Suspect]
     Active Substance: ADALIMUMAB
     Indication: SCLERITIS
     Route: 058
     Dates: start: 20180208, end: 20180507

REACTIONS (5)
  - Bone pain [None]
  - Myalgia [None]
  - Constipation [None]
  - Pruritus generalised [None]
  - Cough [None]

NARRATIVE: CASE EVENT DATE: 20180507
